FAERS Safety Report 17419709 (Version 1)
Quarter: 2020Q1

REPORT INFORMATION
  Report Type: Spontaneous
  Country: US (occurrence: US)
  Receive Date: 20200130
  Receipt Date: 20200130
  Transmission Date: 20200409
  Serious: No
  Sender: FDA-Public Use
  Company Number: None

PATIENT
  Age: 71 Year
  Sex: Male

DRUGS (1)
  1. METFORMIN (METFORMIN HCL 500MG TAB) [Suspect]
     Active Substance: METFORMIN HYDROCHLORIDE
     Indication: DIABETES MELLITUS
     Dates: start: 20191001, end: 20191209

REACTIONS (3)
  - Abdominal discomfort [None]
  - Sleep disorder [None]
  - Thinking abnormal [None]

NARRATIVE: CASE EVENT DATE: 20191212
